FAERS Safety Report 16869189 (Version 3)
Quarter: 2019Q4

REPORT INFORMATION
  Report Type: Spontaneous
  Country: JP (occurrence: JP)
  Receive Date: 20190930
  Receipt Date: 20191104
  Transmission Date: 20200122
  Serious: No
  Sender: FDA-Public Use
  Company Number: JP-ALLERGAN-1938725US

PATIENT
  Sex: Female

DRUGS (2)
  1. LINACLOTIDE - BP [Suspect]
     Active Substance: LINACLOTIDE
     Indication: CONSTIPATION
     Dosage: 0.5 MG, ONCE DAILY, BEFORE DINNER
     Route: 048
  2. LINACLOTIDE - BP [Suspect]
     Active Substance: LINACLOTIDE
     Dosage: UNK
     Route: 048

REACTIONS (2)
  - Medication error [Unknown]
  - Product dose omission [Unknown]
